FAERS Safety Report 9992836 (Version 1)
Quarter: 2014Q1

REPORT INFORMATION
  Report Type: Spontaneous
  Country: US (occurrence: US)
  Receive Date: 20140310
  Receipt Date: 20140310
  Transmission Date: 20141002
  Serious: Yes (Other)
  Sender: FDA-Public Use
  Company Number: US-BAYER-2014-035970

PATIENT
  Age: 19 Year
  Sex: Female
  Weight: 70.3 kg

DRUGS (1)
  1. MIRENA [Suspect]
     Dosage: UNK
     Route: 015
     Dates: start: 201306, end: 20131226

REACTIONS (4)
  - Abortion [Recovered/Resolved]
  - Genital haemorrhage [Recovered/Resolved]
  - Pregnancy with contraceptive device [None]
  - Drug ineffective [None]
